FAERS Safety Report 19030128 (Version 3)
Quarter: 2021Q3

REPORT INFORMATION
  Report Type: Report from Study
  Country: ZA (occurrence: ZA)
  Receive Date: 20210319
  Receipt Date: 20210830
  Transmission Date: 20211014
  Serious: Yes (Other)
  Sender: FDA-Public Use
  Company Number: NVSC2021ZA052452

PATIENT
  Age: 82 Year
  Sex: Female

DRUGS (3)
  1. KRYXANA [Suspect]
     Active Substance: RIBOCICLIB
     Dosage: 200 MG, QD (21 DAYS?7DAYS OFF)
     Route: 048
     Dates: start: 20200928
  2. KRYXANA [Suspect]
     Active Substance: RIBOCICLIB
     Indication: BREAST CANCER
     Dosage: 400 MG
     Route: 065
  3. STRADEXA [Concomitant]
     Indication: PRODUCT USED FOR UNKNOWN INDICATION
     Dosage: 1 IN THE MORNING
     Route: 065

REACTIONS (19)
  - Renal impairment [Unknown]
  - Diarrhoea [Unknown]
  - Alopecia [Unknown]
  - Blood creatinine increased [Unknown]
  - Hyperhidrosis [Unknown]
  - Heart rate increased [Unknown]
  - Blood urea increased [Unknown]
  - Glomerular filtration rate decreased [Unknown]
  - Drug ineffective [Unknown]
  - Carbohydrate antigen 15-3 increased [Unknown]
  - Pain in extremity [Unknown]
  - Visual impairment [Unknown]
  - Pollakiuria [Unknown]
  - Nausea [Unknown]
  - Immunodeficiency [Unknown]
  - Hot flush [Unknown]
  - Hypoacusis [Unknown]
  - Fatigue [Unknown]
  - Headache [Unknown]

NARRATIVE: CASE EVENT DATE: 20210211
